FAERS Safety Report 25964003 (Version 1)
Quarter: 2025Q4

REPORT INFORMATION
  Report Type: Report from Study
  Country: EU (occurrence: EU)
  Receive Date: 20251027
  Receipt Date: 20251027
  Transmission Date: 20260118
  Serious: Yes (Hospitalization)
  Sender: IPSEN BIOPHARMACEUTICALS, INC.
  Company Number: EU-EPIZYME, INC.-2022FREPZ64381056

PATIENT
  Age: 69 Year
  Sex: Male

DRUGS (4)
  1. TAZEMETOSTAT [Suspect]
     Active Substance: TAZEMETOSTAT
     Indication: Lymphoma
     Dosage: 1600 MG DRUG TEMPORARILY INTERRUPTED FROM 27-JUL-2022 TO 01-AUG-2022
     Dates: start: 20220125, end: 20220727
  2. TAZEMETOSTAT [Suspect]
     Active Substance: TAZEMETOSTAT
     Dosage: 1600 MG DRUG TEMPORARILY INTERRUPTED FROM 27-JUL-2022 TO 01-AUG-2022
     Route: 048
  3. CYCLOPHOSPHAMIDE\DOXORUBICIN\PREDNISONE\RITUXIMAB\VINCRISTINE [Concomitant]
     Active Substance: CYCLOPHOSPHAMIDE\DOXORUBICIN\PREDNISONE\RITUXIMAB\VINCRISTINE
     Indication: Lymphoma
     Dosage: UNK
     Dates: start: 20220124, end: 20220530
  4. RITUXIMAB [Concomitant]
     Active Substance: RITUXIMAB
     Indication: Lymphoma
     Dosage: UNK
     Dates: start: 20220124, end: 20220708

REACTIONS (1)
  - COVID-19 [Recovered/Resolved]

NARRATIVE: CASE EVENT DATE: 20220730
